FAERS Safety Report 14889781 (Version 2)
Quarter: 2018Q2

REPORT INFORMATION
  Report Type: Spontaneous
  Country: IT (occurrence: IT)
  Receive Date: 20180514
  Receipt Date: 20180628
  Transmission Date: 20180711
  Serious: Yes (Hospitalization)
  Sender: FDA-Public Use
  Company Number: IT-SUN PHARMACEUTICAL INDUSTRIES LTD-2018RR-172669

PATIENT
  Age: 62 Year
  Sex: Female

DRUGS (8)
  1. TRITTICO 75 MG COMPRESSE A RILASCIO PROLUNGATO [Suspect]
     Active Substance: TRAZODONE HYDROCHLORIDE
     Indication: SEDATION
     Dosage: IN TOTAL
     Route: 048
     Dates: start: 20180411, end: 20180411
  2. QUETIAPINA TEVA ITALIA 300 MG, COMPRESSE A RILASCIO PROLUNGATO [Suspect]
     Active Substance: QUETIAPINE FUMARATE
     Indication: PSYCHOTIC DISORDER
     Dosage: IN TOTAL
     Route: 048
     Dates: start: 20180411, end: 20180411
  3. ALPRAZOLAM ABC 0,50 MG COMPRESSE [Concomitant]
     Indication: ANXIETY
     Dosage: 3 DF
     Route: 048
     Dates: start: 20150101
  4. OLANZAPINA ACTAVIS PTC [Concomitant]
     Indication: PSYCHOTIC DISORDER
     Dosage: 1 DF
     Route: 048
     Dates: start: 20150101
  5. LORAZEPAM. [Suspect]
     Active Substance: LORAZEPAM
     Indication: ANXIETY
     Dosage: IN TOTAL
     Route: 065
     Dates: start: 20180411, end: 20180411
  6. FLUVOXAMINA EG 100 MG COMPRESSE RIVESTITE CON FILM [Concomitant]
     Indication: DEPRESSION
     Dosage: 2 DF
     Route: 048
     Dates: start: 20150101
  7. DALMADORM 30 MG CAPSULE RIGIDE [Concomitant]
     Active Substance: FLURAZEPAM\FLURAZEPAM HYDROCHLORIDE
     Indication: ANXIETY
     Dosage: 1 DF
     Route: 048
     Dates: start: 20150101
  8. LEVOPRAID? 25 MG/ML GOCCE ORALI SOLUZIONE [Concomitant]
     Indication: ANXIETY
     Dosage: 3 GTT
     Route: 048
     Dates: start: 20150101

REACTIONS (2)
  - Drug abuse [Recovered/Resolved]
  - Sopor [Recovered/Resolved]

NARRATIVE: CASE EVENT DATE: 20180411
